FAERS Safety Report 6277477-2 (Version None)
Quarter: 2009Q3

REPORT INFORMATION
  Report Type: 
  Country: None (occurrence: None)
  Receive Date: 20090722
  Receipt Date: 20090709
  Transmission Date: 20100115
  Serious: Yes (Other)
  Sender: FDA-Public Use
  Company Number: GB-PFIZER INC-2009238310

PATIENT
  Age: 42 Year

DRUGS (1)
  1. CHAMPIX [Suspect]
     Dosage: UNK
     Route: 048
     Dates: end: 20090524

REACTIONS (3)
  - AFFECTIVE DISORDER [None]
  - AGITATION [None]
  - PARANOIA [None]
